FAERS Safety Report 10302293 (Version 1)
Quarter: 2014Q3

REPORT INFORMATION
  Report Type: Spontaneous
  Country: US (occurrence: None)
  Receive Date: 20140710
  Receipt Date: 20140710
  Transmission Date: 20150326
  Serious: Yes (Disabling)
  Sender: FDA-Public Use
  Company Number: None

PATIENT
  Age: 82 Year
  Sex: Female
  Weight: 42.64 kg

DRUGS (6)
  1. FUROSEMIDE. [Suspect]
     Active Substance: FUROSEMIDE
     Indication: CARDIAC FAILURE
     Dosage: 40 MG TABLET, 1 TABLET BY MOUTH ONCE DAILY, 1X DAILY, BY MOUTH?DATE REDUCED DOSAGE 5/3, REDUCED TO 1/2 TABLET ONCE DAILY, 1/2 TABLET DAILY, BY MOUTH?DATE REDUCED DOSAGE 5/7, REDUCED TO 1/2 TABLET EVERY OTHER DAY, 1/2 TABLET EVERY OTHER DAY, BY MOUTH
     Route: 048
     Dates: start: 201302, end: 20140503
  2. VIT. D3/CALCIUM/MAGNESIUM [Concomitant]
  3. ENSURE [Concomitant]
     Active Substance: AMINO ACIDS\DEXTROSE\ELECTROLYTES NOS\SOYBEAN OIL\VITAMINS
  4. FUROSEMIDE. [Suspect]
     Active Substance: FUROSEMIDE
     Indication: PROPHYLAXIS
     Dosage: 40 MG TABLET, 1 TABLET BY MOUTH ONCE DAILY, 1X DAILY, BY MOUTH?DATE REDUCED DOSAGE 5/3, REDUCED TO 1/2 TABLET ONCE DAILY, 1/2 TABLET DAILY, BY MOUTH?DATE REDUCED DOSAGE 5/7, REDUCED TO 1/2 TABLET EVERY OTHER DAY, 1/2 TABLET EVERY OTHER DAY, BY MOUTH
     Route: 048
     Dates: start: 201302, end: 20140503
  5. SENNA [Concomitant]
     Active Substance: SENNA LEAF\SENNOSIDES\SENNOSIDES A AND B
  6. COLACE [Concomitant]
     Active Substance: DOCUSATE SODIUM

REACTIONS (2)
  - Ear discomfort [None]
  - Tinnitus [None]

NARRATIVE: CASE EVENT DATE: 2014
